FAERS Safety Report 16092262 (Version 1)
Quarter: 2019Q1

REPORT INFORMATION
  Report Type: Report from Study
  Country: ZA (occurrence: ZA)
  Receive Date: 20190319
  Receipt Date: 20190319
  Transmission Date: 20190418
  Serious: Yes (Other)
  Sender: FDA-Public Use
  Company Number: ZA-MYLANLABS-2019M1025501

PATIENT
  Sex: Female

DRUGS (4)
  1. AZITHROMYCIN ANHYDROUS. [Concomitant]
     Active Substance: AZITHROMYCIN ANHYDROUS
     Indication: PRODUCT USED FOR UNKNOWN INDICATION
     Dosage: UNK
     Route: 065
  2. TOBI [Suspect]
     Active Substance: TOBRAMYCIN
     Indication: CYSTIC FIBROSIS
     Dosage: 2 DOSAGE FORM, QD (300MG/5ML)
     Route: 055
     Dates: start: 2015
  3. TOBI [Suspect]
     Active Substance: TOBRAMYCIN
     Dosage: 2 DOSAGE FORM, QD (300MG/5ML)
     Route: 065
     Dates: start: 201707, end: 201708
  4. PULMOZYME [Concomitant]
     Active Substance: DORNASE ALFA
     Indication: PRODUCT USED FOR UNKNOWN INDICATION
     Dosage: UNK
     Route: 065

REACTIONS (3)
  - Pseudomonas infection [Unknown]
  - Staphylococcal infection [Unknown]
  - Burkholderia cepacia complex infection [Unknown]

NARRATIVE: CASE EVENT DATE: 2015
